FAERS Safety Report 9924257 (Version 1)
Quarter: 2014Q1

REPORT INFORMATION
  Report Type: Spontaneous
  Country: SG (occurrence: SG)
  Receive Date: 20140226
  Receipt Date: 20140226
  Transmission Date: 20141002
  Serious: Yes (Hospitalization)
  Sender: FDA-Public Use
  Company Number: SG-009507513-1402SGP008393

PATIENT
  Age: 29 Year
  Sex: Female

DRUGS (3)
  1. ARCOXIA [Suspect]
     Indication: ANALGESIC THERAPY
     Dosage: 90 MG 1 TIME DAILY
     Route: 048
     Dates: start: 20131223, end: 20131230
  2. OMEPRAZOLE [Suspect]
     Indication: PROPHYLAXIS
     Dosage: 40 MG 1 DAILY
     Route: 048
     Dates: start: 20131223, end: 20131231
  3. CLINDAMYCIN [Suspect]
     Indication: PROPHYLAXIS
     Dosage: 450 MG 4 TIMES DAILY
     Route: 048
     Dates: start: 20131223, end: 20140101

REACTIONS (2)
  - Rash erythematous [Not Recovered/Not Resolved]
  - Rash papular [Not Recovered/Not Resolved]
